FAERS Safety Report 7560889-4 (Version None)
Quarter: 2011Q2

REPORT INFORMATION
  Report Type: 
  Country: None (occurrence: None)
  Receive Date: 20110621
  Receipt Date: 20100716
  Transmission Date: 20111010
  Serious: No
  Sender: FDA-Public Use
  Company Number: US-ASTRAZENECA-2010SE33290

PATIENT
  Sex: Male

DRUGS (1)
  1. ATACAND [Suspect]
     Route: 048

REACTIONS (14)
  - VISION BLURRED [None]
  - HYPERKALAEMIA [None]
  - DYSPEPSIA [None]
  - DIZZINESS [None]
  - MUSCLE SPASMS [None]
  - PAIN [None]
  - HYPOTENSION [None]
  - OEDEMA PERIPHERAL [None]
  - JOINT SWELLING [None]
  - RASH [None]
  - RENAL IMPAIRMENT [None]
  - SINUSITIS [None]
  - NAUSEA [None]
  - FATIGUE [None]
